FAERS Safety Report 9882848 (Version 2)
Quarter: 2014Q1

REPORT INFORMATION
  Report Type: Other
  Country: US (occurrence: US)
  Receive Date: 20140207
  Receipt Date: 20140207
  Transmission Date: 20141002
  Serious: No
  Sender: FDA-Public Use
  Company Number: US-ACORDA-ACO_38854_2013

PATIENT
  Sex: Female

DRUGS (3)
  1. AMPYRA [Suspect]
     Indication: MULTIPLE SCLEROSIS
     Dosage: 10 MG, BID
     Route: 065
     Dates: start: 20130524
  2. AMPYRA [Suspect]
     Indication: GAIT DISTURBANCE
  3. AVONEX [Concomitant]
     Indication: MULTIPLE SCLEROSIS
     Dosage: 30MCG/ML Q WEEKLY
     Route: 030

REACTIONS (6)
  - Depression [Not Recovered/Not Resolved]
  - Gait disturbance [Recovered/Resolved]
  - Drug ineffective [Unknown]
  - Constipation [Recovered/Resolved]
  - Insomnia [Recovered/Resolved]
  - Drug dose omission [Recovered/Resolved]
